FAERS Safety Report 16437864 (Version 1)
Quarter: 2019Q2

REPORT INFORMATION
  Report Type: Spontaneous
  Country: JP (occurrence: JP)
  Receive Date: 20190616
  Receipt Date: 20190616
  Transmission Date: 20190711
  Serious: Yes (Other)
  Sender: FDA-Public Use
  Company Number: JP-BRISTOL-MYERS SQUIBB COMPANY-BMS-2019-058770

PATIENT
  Age: 65 Year
  Sex: Male
  Weight: 53.1 kg

DRUGS (5)
  1. RANMARK [Concomitant]
     Active Substance: DENOSUMAB
     Indication: METASTASES TO BONE
     Dosage: 120 MILLIGRAM
     Route: 058
     Dates: start: 20180115
  2. EDIROL [Concomitant]
     Active Substance: ELDECALCITOL
     Indication: METASTASES TO BONE
     Dosage: 0.75 MICROGRAM, QD
     Route: 048
     Dates: start: 20180602
  3. OPDIVO [Suspect]
     Active Substance: NIVOLUMAB
     Indication: MALIGNANT MELANOMA
     Dosage: 160 MILLIGRAM
     Route: 041
     Dates: start: 20180214, end: 20180907
  4. CALCIUM LACTATE [Concomitant]
     Active Substance: CALCIUM LACTATE
     Indication: METASTASES TO BONE
     Dosage: 1 GRAM, Q8H
     Route: 048
     Dates: start: 20180601
  5. OPDIVO [Suspect]
     Active Substance: NIVOLUMAB
     Indication: PRODUCT USED FOR UNKNOWN INDICATION
     Dosage: 240 MILLIGRAM
     Route: 041
     Dates: start: 20180921, end: 20181228

REACTIONS (3)
  - Aortic valve incompetence [Unknown]
  - Chronic sinusitis [Unknown]
  - Mitral valve incompetence [Unknown]

NARRATIVE: CASE EVENT DATE: 20180727
